FAERS Safety Report 15498170 (Version 13)
Quarter: 2020Q3

REPORT INFORMATION
  Report Type: Spontaneous
  Country: US (occurrence: US)
  Receive Date: 20181015
  Receipt Date: 20200825
  Transmission Date: 20201102
  Serious: Yes (Hospitalization, Other)
  Sender: FDA-Public Use
  Company Number: US-PFIZER INC-2018418630

PATIENT
  Age: 41 Year
  Sex: Male

DRUGS (50)
  1. DILANTIN [Suspect]
     Active Substance: PHENYTOIN
     Dosage: 6 DF, DAILY
     Route: 048
     Dates: start: 20160620, end: 20160623
  2. CLOMIPRAMINE [Concomitant]
     Active Substance: CLOMIPRAMINE
     Dosage: UNK
  3. OMEPRAZOLE DR [Concomitant]
     Active Substance: OMEPRAZOLE
     Dosage: 20 MG, 2X/DAY (BEFORE MEAL, AS DIRECTED)
     Route: 048
     Dates: start: 20171120, end: 20171120
  4. XANAX [Concomitant]
     Active Substance: ALPRAZOLAM
     Dosage: 3 MG, DAILY
  5. DILANTIN [Suspect]
     Active Substance: PHENYTOIN
     Indication: SEIZURE
     Dosage: 6 DF, DAILY
     Route: 048
     Dates: start: 20140512, end: 20141022
  6. DILANTIN [Suspect]
     Active Substance: PHENYTOIN
     Indication: SEIZURE
     Dosage: UNK
     Dates: start: 199505, end: 20161026
  7. PREVACID [Concomitant]
     Active Substance: LANSOPRAZOLE
     Dosage: 30 MG, DAILY
  8. VIMPAT [Concomitant]
     Active Substance: LACOSAMIDE
     Dosage: UNK, 2X/DAY
     Dates: start: 201610
  9. GUAIFENESIN AC [Concomitant]
     Active Substance: CODEINE PHOSPHATE\GUAIFENESIN
     Indication: COUGH
     Dosage: UNK, (2 TEASPOONS, EVERY 6 HOURS) AS NEEDED (PRN)
     Route: 048
  10. CHLORPROMAZINE. [Concomitant]
     Active Substance: CHLORPROMAZINE
     Dosage: 25 MG, 2X/DAY
  11. DILANTIN [Suspect]
     Active Substance: PHENYTOIN
     Dosage: 300 MG, DAILY
  12. PREVACID [Concomitant]
     Active Substance: LANSOPRAZOLE
     Dosage: 30 MG, DAILY (BEFORE A MEAL)
     Route: 048
     Dates: start: 20161017
  13. CAPMIST DM [Concomitant]
     Active Substance: DEXTROMETHORPHAN HYDROBROMIDE\GUAIFENESIN\PSEUDOEPHEDRINE HYDROCHLORIDE
     Dosage: UNK
  14. NAPROXEN. [Concomitant]
     Active Substance: NAPROXEN
     Dosage: 500 MG, 2X/DAY
     Route: 048
  15. REMERON [Concomitant]
     Active Substance: MIRTAZAPINE
     Dosage: 15 MG, DAILY (AT BEDTIME)
     Route: 048
  16. ETODOLAC. [Concomitant]
     Active Substance: ETODOLAC
     Dosage: 400 MG, 3X/DAY
     Route: 048
  17. CHLORPROMAZINE. [Concomitant]
     Active Substance: CHLORPROMAZINE
     Indication: NAUSEA
     Dosage: UNK
     Dates: start: 2018
  18. DILANTIN [Suspect]
     Active Substance: PHENYTOIN
     Indication: SEIZURE
     Dosage: UNK
     Route: 042
     Dates: start: 199505, end: 20161026
  19. LAMOTRIGINE. [Concomitant]
     Active Substance: LAMOTRIGINE
     Dosage: 25 MG, DAILY
  20. IBUPROFEN. [Concomitant]
     Active Substance: IBUPROFEN
     Dosage: 600 MG, 3X/DAY (WITH FOOD, AS DIRECTED)
     Route: 048
     Dates: start: 20170818, end: 20180302
  21. LORATADINE. [Concomitant]
     Active Substance: LORATADINE
     Dosage: 10 MG, DAILY (AS DIRECTED)
     Route: 048
  22. ALBUTEROL SULFATE HFA [Concomitant]
     Active Substance: ALBUTEROL SULFATE
     Dosage: 90 UG, AS NEEDED (EVERY 4 TO 6 HOURS)
     Dates: start: 20131001
  23. DILANTIN [Suspect]
     Active Substance: PHENYTOIN
     Dosage: 6 DF, DAILY
     Route: 048
     Dates: start: 20160623, end: 20161214
  24. DILANTIN [Suspect]
     Active Substance: PHENYTOIN
     Dosage: 400 MG, DAILY
  25. DILANTIN [Suspect]
     Active Substance: PHENYTOIN
     Dosage: UNK, 6 TIMES A DAY
  26. LAMOTRIGINE. [Concomitant]
     Active Substance: LAMOTRIGINE
     Dosage: UNK
  27. CYCLOBENZAPRINE. [Concomitant]
     Active Substance: CYCLOBENZAPRINE
     Dosage: 5 MG, DAILY (AT BED TIME, AS DIRECTED)
     Route: 048
  28. CELEXA [Concomitant]
     Active Substance: CITALOPRAM HYDROBROMIDE
     Dosage: 1 DF, DAILY
     Route: 048
     Dates: start: 20130822
  29. OMEPRAZOLE. [Concomitant]
     Active Substance: OMEPRAZOLE
     Indication: GASTROOESOPHAGEAL REFLUX DISEASE
     Dosage: UNK
     Dates: start: 2016
  30. DILANTIN [Suspect]
     Active Substance: PHENYTOIN
     Dosage: 6 DF, DAILY
     Route: 048
     Dates: start: 20151201
  31. DILANTIN [Suspect]
     Active Substance: PHENYTOIN
     Dosage: 600 MG, DAILY
  32. DILANTIN [Suspect]
     Active Substance: PHENYTOIN
     Dosage: 360 MG, DAILY (EVERY DAY)
  33. SINGULAIR [Concomitant]
     Active Substance: MONTELUKAST SODIUM
     Indication: MULTIPLE ALLERGIES
     Dosage: 10 MG, DAILY (EVERY EVENING, AS DIRECTED)
     Route: 048
     Dates: start: 20171120, end: 20171120
  34. OMEPRAZOLE. [Concomitant]
     Active Substance: OMEPRAZOLE
     Dosage: 20 MG, 2X/DAY
  35. AMBIEN [Concomitant]
     Active Substance: ZOLPIDEM TARTRATE
     Dosage: 5 MG, 1X/DAY (AT BED TIME)
  36. DILANTIN [Suspect]
     Active Substance: PHENYTOIN
     Indication: GENERALISED TONIC-CLONIC SEIZURE
     Dosage: 6 DF, DAILY
     Route: 048
     Dates: start: 1993
  37. DILANTIN [Suspect]
     Active Substance: PHENYTOIN
     Dosage: 6 DF, DAILY
     Route: 048
     Dates: start: 20141022
  38. VIMPAT [Concomitant]
     Active Substance: LACOSAMIDE
     Dosage: 200 MG, DAILY
  39. IBUPROFEN. [Concomitant]
     Active Substance: IBUPROFEN
     Dosage: 600 MG, 3X/DAY (WITH FOOD, AS DIRECTED)
     Route: 048
     Dates: start: 20161130, end: 20170324
  40. ALPRAZOLAM. [Concomitant]
     Active Substance: ALPRAZOLAM
     Dosage: 1 MG, 3X/DAY, AS DIRECTED
     Route: 048
  41. SINGULAIR [Concomitant]
     Active Substance: MONTELUKAST SODIUM
     Dosage: UNK
     Dates: start: 2018
  42. MONTELUKAST SODIUM. [Concomitant]
     Active Substance: MONTELUKAST SODIUM
     Dosage: 10 MG, DAILY (EVERY NIGHT)
     Route: 048
  43. TRAZODONE [Concomitant]
     Active Substance: TRAZODONE HYDROCHLORIDE
     Dosage: 50 MG, DAILY (AT BEDTIME)
     Route: 048
  44. ZYRTEC [Concomitant]
     Active Substance: CETIRIZINE HYDROCHLORIDE
     Indication: MULTIPLE ALLERGIES
     Dosage: UNK
     Dates: start: 2019
  45. ATORVASTATIN [Concomitant]
     Active Substance: ATORVASTATIN
     Indication: BLOOD CHOLESTEROL ABNORMAL
     Dosage: UNK
     Dates: start: 2019
  46. VIMPAT [Concomitant]
     Active Substance: LACOSAMIDE
     Indication: SEIZURE
     Dosage: 100 MG, 2X/DAY (AS DIRECTED)
     Route: 048
     Dates: start: 20161214
  47. VIMPAT [Concomitant]
     Active Substance: LACOSAMIDE
     Dosage: 100 MG, 2X/DAY
     Route: 048
     Dates: start: 20170303
  48. IBUPROFEN. [Concomitant]
     Active Substance: IBUPROFEN
     Dosage: 600 MG, 3X/DAY (WITH FOOD, AS DIRECTED)
     Route: 048
     Dates: start: 20170324
  49. IBUPROFEN. [Concomitant]
     Active Substance: IBUPROFEN
     Dosage: 600 MG, AS NEEDED
  50. MIRTAZAPINE. [Concomitant]
     Active Substance: MIRTAZAPINE
     Dosage: 15 MG, DAILY

REACTIONS (25)
  - Neuropathy peripheral [Not Recovered/Not Resolved]
  - Mental disorder [Not Recovered/Not Resolved]
  - Coordination abnormal [Not Recovered/Not Resolved]
  - Fall [Unknown]
  - Gingival disorder [Unknown]
  - Affective disorder [Unknown]
  - Amnesia [Not Recovered/Not Resolved]
  - Depression [Not Recovered/Not Resolved]
  - Gait disturbance [Unknown]
  - Tooth avulsion [Unknown]
  - Balance disorder [Not Recovered/Not Resolved]
  - Ataxia [Not Recovered/Not Resolved]
  - Anxiety [Unknown]
  - Muscular weakness [Not Recovered/Not Resolved]
  - Cerebral atrophy [Unknown]
  - Asthenia [Unknown]
  - Occipital neuralgia [Unknown]
  - Dysarthria [Unknown]
  - Drug level increased [Unknown]
  - Cerebellar atrophy [Not Recovered/Not Resolved]
  - Obsessive-compulsive disorder [Unknown]
  - Insomnia [Unknown]
  - Tooth infection [Unknown]
  - Cervical radiculopathy [Unknown]
  - Tooth disorder [Unknown]

NARRATIVE: CASE EVENT DATE: 20030515
